FAERS Safety Report 4391208-2 (Version None)
Quarter: 2004Q3

REPORT INFORMATION
  Report Type: 
  Country: None (occurrence: None)
  Receive Date: 20040707
  Receipt Date: 20040624
  Transmission Date: 20050211
  Serious: Yes (Hospitalization)
  Sender: FDA-Public Use
  Company Number: BR-AMGEN-UK081533

PATIENT
  Sex: Male

DRUGS (5)
  1. NEUPOGEN [Suspect]
     Indication: CHEMOTHERAPY
     Route: 058
     Dates: start: 20040221
  2. CARBOPLATIN [Suspect]
     Route: 042
     Dates: start: 20040211
  3. IRINOTECAN [Suspect]
     Route: 042
     Dates: start: 20040211
  4. GABAPENTIN [Concomitant]
     Dates: start: 20030901
  5. BACTRIM [Concomitant]
     Dates: start: 20030710

REACTIONS (1)
  - PANCYTOPENIA [None]
